FAERS Safety Report 11639554 (Version 1)
Quarter: 2015Q4

REPORT INFORMATION
  Report Type: Report from Study
  Country: US (occurrence: US)
  Receive Date: 20151019
  Receipt Date: 20151019
  Transmission Date: 20160304
  Serious: Yes (Other)
  Sender: FDA-Public Use
  Company Number: PHEH2015US004689

PATIENT
  Age: 80 Year
  Sex: Female
  Weight: 93.61 kg

DRUGS (10)
  1. AFINITOR [Suspect]
     Active Substance: EVEROLIMUS
     Indication: BREAST CANCER
     Dosage: 10 MG, QD
     Route: 048
  2. AFINITOR [Suspect]
     Active Substance: EVEROLIMUS
     Dosage: 5 MG, QD
     Route: 048
  3. ABTEI MAGNESIUM [Concomitant]
     Indication: PRODUCT USED FOR UNKNOWN INDICATION
     Dosage: 30 MG, UNK
     Route: 065
  4. FASLODEX [Suspect]
     Active Substance: FULVESTRANT
     Indication: BREAST CANCER
     Dosage: UNK
     Route: 065
     Dates: start: 20130214
  5. ASPIRIN. [Concomitant]
     Active Substance: ASPIRIN
     Indication: PRODUCT USED FOR UNKNOWN INDICATION
     Route: 065
  6. ZOMETA [Suspect]
     Active Substance: ZOLEDRONIC ACID
     Indication: BREAST CANCER
     Route: 065
     Dates: start: 20130207
  7. TAMOXIFEN [Suspect]
     Active Substance: TAMOXIFEN
     Indication: BREAST CANCER
     Dosage: UNK
     Route: 065
     Dates: start: 20140327
  8. AROMASIN [Suspect]
     Active Substance: EXEMESTANE
     Indication: BREAST CANCER
     Dosage: 25 MG, QD
     Route: 065
  9. FLUOTRAT//SODIUM FLUORIDE [Concomitant]
     Indication: PRODUCT USED FOR UNKNOWN INDICATION
     Route: 065
  10. ARIMIDEX [Suspect]
     Active Substance: ANASTROZOLE
     Indication: BREAST CANCER
     Dosage: UNK
     Route: 065
     Dates: start: 20120120

REACTIONS (12)
  - Aspartate aminotransferase increased [Unknown]
  - Malignant neoplasm progression [Unknown]
  - Musculoskeletal chest pain [Unknown]
  - Breast cancer [Unknown]
  - Neutrophil count decreased [Unknown]
  - Dyspepsia [Unknown]
  - Neuropathy peripheral [Unknown]
  - Platelet count decreased [Unknown]
  - Epistaxis [Recovered/Resolved]
  - Pain [Unknown]
  - Back pain [Unknown]
  - Anaemia [Unknown]

NARRATIVE: CASE EVENT DATE: 201501
